FAERS Safety Report 8988730 (Version 1)
Quarter: 2012Q4

REPORT INFORMATION
  Report Type: Report from Study
  Country: DK (occurrence: DK)
  Receive Date: 20121228
  Receipt Date: 20121228
  Transmission Date: 20130627
  Serious: Yes (Other)
  Sender: FDA-Public Use
  Company Number: DK-ROCHE-1152572

PATIENT

DRUGS (3)
  1. CAPECITABINE [Suspect]
     Indication: GASTRIC CANCER
     Dosage: last dose prior to SAE was On 27/Jan/2011
     Route: 065
     Dates: start: 20101005
  2. DOCETAXEL [Suspect]
     Indication: GASTRIC CANCER
     Dosage: last dose prior to SAE was On 27/Jan/2011
     Route: 065
     Dates: start: 20101005
  3. OXALIPLATIN [Suspect]
     Indication: GASTRIC CANCER
     Dosage: last dose prior to SAE was On 27/Jan/2011
     Route: 065
     Dates: start: 20101005

REACTIONS (1)
  - Bile duct obstruction [Recovered/Resolved]
